FAERS Safety Report 11171837 (Version 6)
Quarter: 2017Q3

REPORT INFORMATION
  Report Type: Spontaneous
  Country: US (occurrence: US)
  Receive Date: 20150608
  Receipt Date: 20170714
  Transmission Date: 20171127
  Serious: Yes (Disabling, Other)
  Sender: FDA-Public Use
  Company Number: US-PFIZER INC-2015188543

PATIENT
  Age: 58 Year
  Sex: Female
  Weight: 104.3 kg

DRUGS (5)
  1. BYSTOLIC [Concomitant]
     Active Substance: NEBIVOLOL HYDROCHLORIDE
     Dosage: 10 MG, UNK
     Dates: end: 20150320
  2. PREDNISONE. [Suspect]
     Active Substance: PREDNISONE
     Indication: SWELLING
     Dosage: 15 MG, UNK
     Dates: start: 20150529, end: 2015
  3. METOPROLOL SUCCINATE. [Concomitant]
     Active Substance: METOPROLOL SUCCINATE
     Indication: HYPERTENSION
     Dosage: 50 MG, 1X/DAY
  4. XELJANZ [Suspect]
     Active Substance: TOFACITINIB CITRATE
     Indication: RHEUMATOID ARTHRITIS
     Dosage: 5 MG, 2X/DAY
     Route: 048
     Dates: start: 20141028, end: 20150601
  5. PREDNISONE. [Suspect]
     Active Substance: PREDNISONE
     Dosage: 10 MG, UNK
     Dates: start: 2015

REACTIONS (18)
  - Hepatic mass [Unknown]
  - Gingival pain [Unknown]
  - Photosensitivity reaction [Unknown]
  - Nasal disorder [Unknown]
  - Fibromyalgia [Unknown]
  - Influenza [Unknown]
  - Bronchitis [Unknown]
  - Rheumatoid arthritis [Unknown]
  - Swelling [Recovering/Resolving]
  - Back pain [Unknown]
  - Osteoarthritis [Unknown]
  - Dyspnoea [Unknown]
  - Asthma [Unknown]
  - Insomnia [Unknown]
  - Chest discomfort [Unknown]
  - Psoriatic arthropathy [Unknown]
  - Weight increased [Unknown]
  - Pharyngeal disorder [Unknown]

NARRATIVE: CASE EVENT DATE: 201501
